FAERS Safety Report 4844898-1 (Version None)
Quarter: 2005Q4

REPORT INFORMATION
  Report Type: 
  Country: None (occurrence: None)
  Receive Date: 20051205
  Receipt Date: 20050425
  Transmission Date: 20060501
  Serious: Yes (Life-Threatening, Hospitalization)
  Sender: FDA-Public Use
  Company Number: US-SANOFI-SYNTHELABO-F01200500633

PATIENT
  Sex: Female

DRUGS (26)
  1. CLOPIDOGREL BISULFATE [Suspect]
     Indication: ACUTE CORONARY SYNDROME
     Dosage: UNK
     Route: 065
     Dates: start: 20050401, end: 20050409
  2. EVISTA [Concomitant]
     Indication: OSTEOPOROSIS
  3. HEPARIN [Concomitant]
     Indication: ANTICOAGULATION DRUG LEVEL
  4. LOPRESSOR [Concomitant]
     Dosage: 50 MG/2 DAY
     Route: 048
     Dates: start: 20050401
  5. XANAX [Concomitant]
     Indication: ANXIETY
  6. ELAVIL [Concomitant]
     Indication: DEPRESSION
     Dates: start: 20050401
  7. ECOTRIN [Concomitant]
     Indication: PROPHYLAXIS
  8. ZOCOR [Concomitant]
     Indication: HYPERLIPIDAEMIA
  9. ATACAND [Concomitant]
     Indication: HYPERTENSION
  10. DESYREL [Concomitant]
     Indication: DEPRESSION
  11. COZAAR [Concomitant]
     Indication: HYPERTENSION
     Dosage: 100 MG
     Route: 048
     Dates: start: 20050401
  12. PERCOCET [Concomitant]
     Indication: PAIN
  13. MACROBID [Concomitant]
     Indication: URINARY TRACT INFECTION
     Dosage: 100 MG/ 2 DAY
     Route: 065
     Dates: start: 20050405
  14. DICYCLOMINE [Concomitant]
     Indication: IRRITABLE BOWEL SYNDROME
  15. PROTONIX [Concomitant]
     Indication: GASTROINTESTINAL DISORDER
     Dosage: 40 MG
     Route: 048
     Dates: start: 20050403
  16. MORPHINE [Concomitant]
     Dosage: 1 MG
     Route: 042
     Dates: start: 20050402
  17. PSYLLIUM [Concomitant]
     Dosage: 3.4 G
     Route: 048
     Dates: start: 20050404
  18. TRIMETHOPRIM + SULFAMETHOXAZOLE [Concomitant]
     Dosage: UNK
     Route: 065
     Dates: start: 20050403
  19. BISACODYL [Concomitant]
     Dosage: 10
     Dates: start: 20050406
  20. HYDROMORPHONE [Concomitant]
     Dosage: 0.2 MG
     Route: 042
     Dates: start: 20050402
  21. ACETAMINOPHEN [Concomitant]
     Indication: PYREXIA
     Dates: start: 20050401
  22. ALPRAZOLAM [Concomitant]
     Dosage: 0.25 MG
     Dates: start: 20050401
  23. METOCLOPRAMIDE [Concomitant]
     Indication: NAUSEA
     Dates: start: 20050406
  24. ZOLPIDEM TARTRATE [Concomitant]
     Indication: SLEEP DISORDER
     Dates: start: 20050405
  25. ABCIXIMAB [Concomitant]
     Dosage: 9 MG
     Route: 042
     Dates: start: 20050401, end: 20050402
  26. DOCUSATE SODIUM [Concomitant]
     Dosage: 100 MG/ 2 DAY
     Dates: start: 20050405

REACTIONS (9)
  - ANXIETY [None]
  - DISSEMINATED INTRAVASCULAR COAGULATION [None]
  - EJECTION FRACTION DECREASED [None]
  - LOSS OF CONSCIOUSNESS [None]
  - MENTAL STATUS CHANGES [None]
  - METABOLIC ACIDOSIS [None]
  - MITRAL VALVE INCOMPETENCE [None]
  - NECROSIS [None]
  - PERIPHERAL VASCULAR DISORDER [None]
